FAERS Safety Report 7412627-3 (Version None)
Quarter: 2011Q2

REPORT INFORMATION
  Report Type: 
  Country: None (occurrence: None)
  Receive Date: 20110413
  Receipt Date: 20110406
  Transmission Date: 20111010
  Serious: Yes (Life-Threatening, Other)
  Sender: FDA-Public Use
  Company Number: JP-JNJFOC-20110403262

PATIENT
  Sex: Male
  Weight: 60 kg

DRUGS (5)
  1. LEUSTATIN [Suspect]
     Indication: HAIRY CELL LEUKAEMIA
     Route: 041
  2. POLYMYXIN-B-SULFATE [Concomitant]
     Indication: ANTIBIOTIC PROPHYLAXIS
     Route: 048
  3. DIFLUCAN [Concomitant]
     Indication: ANTIBIOTIC PROPHYLAXIS
     Route: 048
  4. GRAN [Concomitant]
     Route: 058
  5. BAKTAR [Concomitant]
     Indication: ANTIBIOTIC PROPHYLAXIS
     Route: 048

REACTIONS (5)
  - NEUTROPHIL COUNT DECREASED [None]
  - HEPATIC FUNCTION ABNORMAL [None]
  - RENAL IMPAIRMENT [None]
  - PLATELET COUNT DECREASED [None]
  - HAIRY CELL LEUKAEMIA [None]
